FAERS Safety Report 15048462 (Version 1)
Quarter: 2018Q3

REPORT INFORMATION
  Report Type: Report from Study
  Country: ES (occurrence: ES)
  Receive Date: 20180622
  Receipt Date: 20180622
  Transmission Date: 20181010
  Serious: Yes (Other)
  Sender: FDA-Public Use
  Company Number: ES-TEVA-2018-ES-908915

PATIENT
  Age: 15 Year
  Sex: Female
  Weight: 53 kg

DRUGS (5)
  1. ACICLOVIR (201A) [Concomitant]
     Active Substance: ACYCLOVIR
     Indication: PROPHYLAXIS
     Route: 048
     Dates: start: 20170105, end: 20170929
  2. MERCAPTOPURINA (405A) [Suspect]
     Active Substance: MERCAPTOPURINE
     Indication: ACUTE LYMPHOCYTIC LEUKAEMIA
     Dosage: 9 MILLIGRAM DAILY;
     Route: 048
     Dates: start: 20170721, end: 20170804
  3. METHOTREXATE. [Suspect]
     Active Substance: METHOTREXATE
     Indication: ACUTE LYMPHOCYTIC LEUKAEMIA
     Route: 048
     Dates: start: 20170721, end: 20170804
  4. ONCASPAR [Suspect]
     Active Substance: PEGASPARGASE
     Indication: ACUTE LYMPHOCYTIC LEUKAEMIA
     Route: 030
     Dates: start: 20170519, end: 20170901
  5. SEPTRIN FORTE 160 MG/800 MGPILLS, 20 TABLETS [Concomitant]
     Indication: PROPHYLAXIS
     Route: 048
     Dates: start: 20170105

REACTIONS (2)
  - Hypertriglyceridaemia [Recovered/Resolved]
  - Hypertransaminasaemia [Recovered/Resolved]

NARRATIVE: CASE EVENT DATE: 20170804
